FAERS Safety Report 7624160-4 (Version None)
Quarter: 2011Q3

REPORT INFORMATION
  Report Type: 
  Country: None (occurrence: None)
  Receive Date: 20110720
  Receipt Date: 20110720
  Transmission Date: 20111222
  Serious: Yes (Other)
  Sender: FDA-Public Use
  Company Number: None

PATIENT
  Age: 31 Year
  Sex: Male
  Weight: 158.75 kg

DRUGS (1)
  1. OMEPRAZOLE [Suspect]
     Indication: OESOPHAGEAL DISORDER
     Dosage: ONE CAPSULE
     Route: 048
     Dates: start: 20110515, end: 20110718

REACTIONS (2)
  - ABNORMAL BEHAVIOUR [None]
  - PRODUCT FORMULATION ISSUE [None]
